FAERS Safety Report 6566549-0 (Version None)
Quarter: 2010Q1

REPORT INFORMATION
  Report Type: 
  Country: None (occurrence: None)
  Receive Date: 20100127
  Receipt Date: 20090625
  Transmission Date: 20100710
  Serious: Yes (Hospitalization)
  Sender: FDA-Public Use
  Company Number: DSA_42082_2009

PATIENT
  Age: 73 Year
  Sex: Female

DRUGS (6)
  1. DILTIAZEM HCL [Suspect]
     Indication: DRUG USE FOR UNKNOWN INDICATION
     Dosage: (1 DF BID ORAL)
     Route: 048
     Dates: start: 20090528, end: 20090715
  2. PLAVIX [Suspect]
     Indication: CORONARY ARTERIAL STENT INSERTION
     Dosage: (75 MG QD ORAL)
     Route: 048
     Dates: start: 20090526, end: 20090703
  3. LOSARTAN POTASSIUM/HYDROCHLOROTHIAZIDE [Suspect]
     Indication: HYPERTENSION
     Dosage: (100 MG/12.5 MG DAILY ORAL)
     Route: 048
     Dates: start: 20090528, end: 20090703
  4. KARDEGIC [Concomitant]
  5. TAHOR [Concomitant]
  6. NITROGLYCERIN [Concomitant]

REACTIONS (6)
  - ARTHRITIS [None]
  - BACTERIAL SEPSIS [None]
  - HYPERURICAEMIA [None]
  - JOINT SWELLING [None]
  - OEDEMA PERIPHERAL [None]
  - PAIN IN EXTREMITY [None]
